FAERS Safety Report 15120700 (Version 1)
Quarter: 2018Q3

REPORT INFORMATION
  Report Type: Spontaneous
  Country: US (occurrence: US)
  Receive Date: 20180709
  Receipt Date: 20180709
  Transmission Date: 20181010
  Serious: No
  Sender: FDA-Public Use
  Company Number: US-SA-2018SA112318

PATIENT
  Age: 40 Year
  Sex: Female

DRUGS (1)
  1. DUPIXENT [Suspect]
     Active Substance: DUPILUMAB
     Dosage: 150 MG/ML, QOW
     Route: 058
     Dates: start: 20180301

REACTIONS (4)
  - Nausea [Unknown]
  - Condition aggravated [Unknown]
  - Vomiting [Unknown]
  - Dry eye [Unknown]

NARRATIVE: CASE EVENT DATE: 20180301
